FAERS Safety Report 5972168-7 (Version None)
Quarter: 2008Q4

REPORT INFORMATION
  Report Type: 
  Country: None (occurrence: None)
  Receive Date: 20081201
  Receipt Date: 20071002
  Transmission Date: 20090506
  Serious: No
  Sender: FDA-Public Use
  Company Number: US-TEVA-162268USA

PATIENT
  Sex: Female

DRUGS (4)
  1. SALBUTAMOL SULFATE INHALATION, 0.09 MG [Suspect]
     Indication: ASTHMA
     Route: 055
     Dates: start: 19801002
  2. TIOTROPIUM BROMIDE [Concomitant]
  3. SERETIDE [Concomitant]
  4. ESOMEPRAZOLE MAGNESIUM [Concomitant]

REACTIONS (3)
  - CHEST PAIN [None]
  - DRUG INEFFECTIVE [None]
  - DYSPNOEA [None]
